FAERS Safety Report 15830886 (Version 3)
Quarter: 2019Q1

REPORT INFORMATION
  Report Type: Spontaneous
  Country: JP (occurrence: JP)
  Receive Date: 20190116
  Receipt Date: 20190210
  Transmission Date: 20190417
  Serious: Yes (Hospitalization, Other)
  Sender: FDA-Public Use
  Company Number: PHJP2019JP000662

PATIENT
  Age: 83 Year
  Sex: Male

DRUGS (2)
  1. NEORAL [Suspect]
     Active Substance: CYCLOSPORINE
     Dosage: 0.5 MG/KG, QD
     Route: 048
     Dates: start: 20190104, end: 20190111
  2. NEORAL [Suspect]
     Active Substance: CYCLOSPORINE
     Indication: EOSINOPHILIC PUSTULAR FOLLICULITIS
     Dosage: 1 MG/KG, QD
     Route: 048
     Dates: start: 20181214, end: 20190103

REACTIONS (13)
  - Oedema peripheral [Unknown]
  - Neurological symptom [Unknown]
  - Aspiration [Unknown]
  - Product use in unapproved indication [Unknown]
  - Delirium [Unknown]
  - Sputum retention [Unknown]
  - Hyponatraemia [Unknown]
  - Encephalopathy [Recovering/Resolving]
  - Rhabdomyolysis [Recovering/Resolving]
  - Bacteraemia [Unknown]
  - Cognitive disorder [Recovering/Resolving]
  - Blood creatine phosphokinase increased [Unknown]
  - Pneumonia aspiration [Unknown]

NARRATIVE: CASE EVENT DATE: 201812
